FAERS Safety Report 19688193 (Version 5)
Quarter: 2022Q2

REPORT INFORMATION
  Report Type: Report from Study
  Country: US (occurrence: US)
  Receive Date: 20210812
  Receipt Date: 20220523
  Transmission Date: 20220721
  Serious: No
  Sender: FDA-Public Use
  Company Number: US-IPSEN BIOPHARMACEUTICALS, INC.-2021-19439

PATIENT
  Age: 57 Year
  Sex: Male

DRUGS (2)
  1. SOMATULINE DEPOT [Suspect]
     Active Substance: LANREOTIDE ACETATE
     Indication: Carcinoid syndrome
     Dosage: 120 MG/0.5 ML EVERY FOUR WEEKS (SITE: BUTTOCKS)
     Route: 058
     Dates: start: 20210702
  2. SOMATULINE DEPOT [Suspect]
     Active Substance: LANREOTIDE ACETATE
     Indication: Carcinoid tumour of the small bowel

REACTIONS (12)
  - Headache [Not Recovered/Not Resolved]
  - Dizziness [Not Recovered/Not Resolved]
  - Asthenia [Unknown]
  - Decreased appetite [Not Recovered/Not Resolved]
  - Fatigue [Recovering/Resolving]
  - Depression [Recovering/Resolving]
  - Attention deficit hyperactivity disorder [Recovering/Resolving]
  - Dry skin [Recovering/Resolving]
  - Swelling [Recovering/Resolving]
  - Yellow skin [Recovering/Resolving]
  - Anxiety [Recovered/Resolved]
  - Depressed mood [Not Recovered/Not Resolved]

NARRATIVE: CASE EVENT DATE: 20210101
